FAERS Safety Report 16145075 (Version 1)
Quarter: 2019Q2

REPORT INFORMATION
  Report Type: Spontaneous
  Country: US (occurrence: US)
  Receive Date: 20190402
  Receipt Date: 20190402
  Transmission Date: 20190711
  Serious: No
  Sender: FDA-Public Use
  Company Number: US-GLENMARK PHARMACEUTICALS-2019GMK039630

PATIENT

DRUGS (2)
  1. CONTRAVE [Concomitant]
     Active Substance: BUPROPION HYDROCHLORIDE\NALTREXONE HYDROCHLORIDE
     Indication: PRODUCT USED FOR UNKNOWN INDICATION
     Dosage: UNK, [UNSPECIFIED (A YEAR AND A HALF AGO)]
     Route: 065
  2. ASHLYNA [Suspect]
     Active Substance: ETHINYL ESTRADIOL\LEVONORGESTREL
     Indication: MENSTRUAL CYCLE MANAGEMENT
     Dosage: 1 DF, QD (1 PILL EVERYDAY)
     Route: 048
     Dates: start: 2004, end: 20190112

REACTIONS (3)
  - Dysmenorrhoea [Recovered/Resolved]
  - Product use in unapproved indication [Unknown]
  - Abdominal pain [Recovered/Resolved]
